FAERS Safety Report 20199443 (Version 1)
Quarter: 2021Q4

REPORT INFORMATION
  Report Type: Spontaneous
  Country: US (occurrence: None)
  Receive Date: 20211217
  Receipt Date: 20211217
  Transmission Date: 20220303
  Serious: Yes (Hospitalization)
  Sender: FDA-Public Use
  Company Number: None

PATIENT
  Age: 23 Year
  Sex: Male

DRUGS (1)
  1. TOBRAMYCIN [Suspect]
     Active Substance: TOBRAMYCIN
     Indication: Pneumonia pseudomonal
     Dosage: FREQUENCY : TWICE A DAY;?
     Route: 055
     Dates: start: 202011

REACTIONS (3)
  - Disease recurrence [None]
  - Product dose omission issue [None]
  - Insurance issue [None]

NARRATIVE: CASE EVENT DATE: 20211201
